FAERS Safety Report 8957610 (Version 1)
Quarter: 2012Q4

REPORT INFORMATION
  Report Type: 
  Country: US (occurrence: US)
  Receive Date: 20121211
  Receipt Date: 20121211
  Transmission Date: 20130627
  Serious: No
  Sender: FDA-Public Use
  Company Number: US-009507513-1212USA003458

PATIENT
  Sex: Female
  Weight: 109.75 kg

DRUGS (1)
  1. IMPLANON [Suspect]
     Indication: CONTRACEPTION
     Dosage: UNK
     Route: 059
     Dates: start: 201206, end: 20121112

REACTIONS (6)
  - Mood altered [Unknown]
  - Irritability [Unknown]
  - Application site pruritus [Unknown]
  - Scratch [Unknown]
  - Device breakage [Unknown]
  - Product quality issue [Unknown]
